FAERS Safety Report 7114121-6 (Version None)
Quarter: 2010Q4

REPORT INFORMATION
  Report Type: 
  Country: None (occurrence: None)
  Receive Date: 20101119
  Receipt Date: 20101112
  Transmission Date: 20110411
  Serious: Yes (Other)
  Sender: FDA-Public Use
  Company Number: US-US-EMD SERONO, INC.-7020265

PATIENT
  Sex: Male
  Weight: 84 kg

DRUGS (1)
  1. REBIF [Suspect]
     Indication: MULTIPLE SCLEROSIS
     Route: 058
     Dates: start: 20040519, end: 20101001

REACTIONS (4)
  - COLONIC POLYP [None]
  - CORONARY ARTERY OCCLUSION [None]
  - GASTRITIS [None]
  - HAEMATOCRIT DECREASED [None]
